FAERS Safety Report 4963395-6 (Version None)
Quarter: 2006Q1

REPORT INFORMATION
  Report Type: 
  Country: None (occurrence: None)
  Receive Date: 20060329
  Receipt Date: 20060317
  Transmission Date: 20060701
  Serious: Yes (Hospitalization)
  Sender: FDA-Public Use
  Company Number: 2006PV010197

PATIENT
  Age: 56 Year
  Sex: Female

DRUGS (4)
  1. BYETTA [Suspect]
     Indication: DIABETES MELLITUS NON-INSULIN-DEPENDENT
     Dosage: 10 MCG, BID; SC
     Route: 058
     Dates: start: 20051201, end: 20060301
  2. ZOLOFT [Concomitant]
  3. LIPITOR [Concomitant]
  4. DIOVAN ^NORVARTIS^ [Concomitant]

REACTIONS (15)
  - ADENOMA BENIGN [None]
  - ANAEMIA [None]
  - ASTHENIA [None]
  - COLON ADENOMA [None]
  - COLONIC POLYP [None]
  - DIARRHOEA [None]
  - DIVERTICULUM [None]
  - DIZZINESS [None]
  - GASTRITIS [None]
  - HAEMORRHOIDS [None]
  - HEADACHE [None]
  - HYPOKALAEMIA [None]
  - ILEUS [None]
  - IRON DEFICIENCY [None]
  - VISUAL DISTURBANCE [None]
